FAERS Safety Report 7421423-2 (Version None)
Quarter: 2011Q2

REPORT INFORMATION
  Report Type: 
  Country: None (occurrence: None)
  Receive Date: 20110418
  Receipt Date: 20110407
  Transmission Date: 20111010
  Serious: Yes (Hospitalization)
  Sender: FDA-Public Use
  Company Number: US-ASTRAZENECA-2011SE08115

PATIENT
  Age: 62 Year
  Sex: Female

DRUGS (4)
  1. PREVACID [Concomitant]
  2. PROVIGIL [Concomitant]
  3. NEXIUM [Suspect]
     Route: 048
  4. PRILOSEC [Suspect]
     Route: 048

REACTIONS (14)
  - DYSPHAGIA [None]
  - COMMUNICATION DISORDER [None]
  - DRUG DOSE OMISSION [None]
  - DYSPEPSIA [None]
  - NASAL CONGESTION [None]
  - ABDOMINAL DISCOMFORT [None]
  - CHEST PAIN [None]
  - POST PROCEDURAL COMPLICATION [None]
  - CHEST DISCOMFORT [None]
  - GASTROOESOPHAGEAL REFLUX DISEASE [None]
  - BLADDER DISORDER [None]
  - APHAGIA [None]
  - ERUCTATION [None]
  - VOMITING [None]
